FAERS Safety Report 20461630 (Version 3)
Quarter: 2022Q1

REPORT INFORMATION
  Report Type: Other
  Country: US (occurrence: None)
  Receive Date: 20220211
  Receipt Date: 20220307
  Transmission Date: 20220423
  Serious: Yes (Hospitalization)
  Sender: FDA-Public Use
  Company Number: US-ROCHE-3021331

PATIENT
  Age: 59 Year
  Sex: Female
  Weight: 52.210 kg

DRUGS (12)
  1. OCREVUS [Suspect]
     Active Substance: OCRELIZUMAB
     Indication: Multiple sclerosis
     Dosage: DAY 1 AND DAY 15?DATE OF TREATMENT: 21/JUN/2019, 05/JUL/2019, 06/JAN/2020, 06/JUL/2020, 06/JAN/2021,
     Route: 042
     Dates: start: 20190620
  2. OCREVUS [Suspect]
     Active Substance: OCRELIZUMAB
     Route: 065
     Dates: start: 20210706
  3. METHYLPREDNISOLONE [Concomitant]
     Active Substance: METHYLPREDNISOLONE
  4. SOLIFENACIN [Concomitant]
     Active Substance: SOLIFENACIN
  5. ZOLEDRONIC ACID [Concomitant]
     Active Substance: ZOLEDRONIC ACID
  6. DALFAMPRIDINE [Concomitant]
     Active Substance: DALFAMPRIDINE
  7. BACLOFEN [Concomitant]
     Active Substance: BACLOFEN
  8. NIFEDIPINE [Concomitant]
     Active Substance: NIFEDIPINE
  9. GABAPENTIN [Concomitant]
     Active Substance: GABAPENTIN
  10. CHOLECALCIFEROL [Concomitant]
     Active Substance: CHOLECALCIFEROL
     Dosage: 1000 UNIT CAP
  11. SIMVASTATIN [Concomitant]
     Active Substance: SIMVASTATIN
  12. AMPYRA [Concomitant]
     Active Substance: DALFAMPRIDINE

REACTIONS (2)
  - COVID-19 [Recovered/Resolved]
  - Urinary tract infection [Recovered/Resolved]

NARRATIVE: CASE EVENT DATE: 20211201
